FAERS Safety Report 24360377 (Version 2)
Quarter: 2024Q4

REPORT INFORMATION
  Report Type: Spontaneous
  Country: ES (occurrence: ES)
  Receive Date: 20240925
  Receipt Date: 20241010
  Transmission Date: 20250114
  Serious: Yes (Other)
  Sender: TEVA
  Company Number: ES-TEVA-VS-3244811

PATIENT
  Age: 30 Year
  Sex: Female

DRUGS (1)
  1. PROGESTERONE [Suspect]
     Active Substance: PROGESTERONE
     Indication: Oral contraception
     Route: 048

REACTIONS (1)
  - Autoimmune dermatitis [Recovering/Resolving]

NARRATIVE: CASE EVENT DATE: 20200101
